FAERS Safety Report 8820668 (Version 1)
Quarter: 2012Q4

REPORT INFORMATION
  Report Type: Report from Study
  Country: US (occurrence: US)
  Receive Date: 20121002
  Receipt Date: 20121002
  Transmission Date: 20130627
  Serious: Yes (Hospitalization, Other)
  Sender: FDA-Public Use
  Company Number: US-JNJFOC-20120911528

PATIENT

DRUGS (1)
  1. REMICADE [Suspect]
     Indication: CROHN^S DISEASE
     Dosage: minimum infliximab every 8 weeks
     Route: 042

REACTIONS (6)
  - Fistula [Unknown]
  - Iritis [Unknown]
  - Cellulitis [Unknown]
  - Bacterial infection [Unknown]
  - Folliculitis [Unknown]
  - Psoriasis [Unknown]
